FAERS Safety Report 8762259 (Version 1)
Quarter: 2012Q4

REPORT INFORMATION
  Report Type: 
  Country: US (occurrence: US)
  Receive Date: 20120828
  Receipt Date: 20120828
  Transmission Date: 20130627
  Serious: No
  Sender: FDA-Public Use
  Company Number: US-GLAXOSMITHKLINE-A0968286A

PATIENT
  Age: 65 Year
  Sex: Female
  Weight: 54.5 kg

DRUGS (14)
  1. BECONASE [Suspect]
     Indication: RHINORRHOEA
     Route: 045
     Dates: start: 20120109
  2. ATENOLOL [Concomitant]
  3. LOSARTAN [Concomitant]
  4. CEFALEXIN [Concomitant]
  5. OMNARIS [Concomitant]
  6. TRAZODONE [Concomitant]
  7. LAMICTAL [Concomitant]
  8. ALBUTEROL [Concomitant]
  9. CALCIUM [Concomitant]
  10. SPIRIVA [Concomitant]
  11. FOSAMAX [Concomitant]
  12. CLONAZEPAM [Concomitant]
  13. MULTIVITAMIN [Concomitant]
  14. VITAMIN D [Concomitant]

REACTIONS (1)
  - Dry mouth [Not Recovered/Not Resolved]
